FAERS Safety Report 15493637 (Version 1)
Quarter: 2018Q4

REPORT INFORMATION
  Report Type: Spontaneous
  Country: US (occurrence: US)
  Receive Date: 20181004
  Receipt Date: 20181004
  Transmission Date: 20190205
  Serious: Yes (Hospitalization, Disabling, Other)
  Sender: FDA-Public Use
  Company Number: None

PATIENT
  Age: 65 Year
  Sex: Female

DRUGS (3)
  1. HYDROXYUREA, 500 MG [Suspect]
     Active Substance: HYDROXYUREA
     Indication: ESSENTIAL THROMBOCYTHAEMIA
     Route: 048
     Dates: start: 20180225
  2. PRAMIPEXOLE. [Concomitant]
     Active Substance: PRAMIPEXOLE
  3. RANITIDINE. [Concomitant]
     Active Substance: RANITIDINE

REACTIONS (5)
  - Amnesia [None]
  - Product dose omission [None]
  - Abdominal discomfort [None]
  - Cerebrovascular accident [None]
  - Fall [None]

NARRATIVE: CASE EVENT DATE: 20180917
